FAERS Safety Report 9126816 (Version 1)
Quarter: 2013Q1

REPORT INFORMATION
  Report Type: Spontaneous
  Country: FR (occurrence: FR)
  Receive Date: 20130228
  Receipt Date: 20130228
  Transmission Date: 20140127
  Serious: Yes (Life-Threatening, Hospitalization)
  Sender: FDA-Public Use
  Company Number: FR-TEVA-388015ISR

PATIENT
  Age: 66 Year
  Sex: Female

DRUGS (5)
  1. NAPROXEN [Suspect]
     Indication: ARTHRALGIA
     Dosage: 1000 MILLIGRAM DAILY;
     Route: 048
     Dates: end: 20100414
  2. OMEPRAZOLE [Suspect]
     Indication: PROPHYLAXIS AGAINST GASTROINTESTINAL ULCER
     Dosage: 20 MILLIGRAM DAILY;
     Route: 048
     Dates: end: 20100414
  3. ENANTYUM [Suspect]
     Dosage: 25 MILLIGRAM DAILY;
     Route: 048
  4. ENANTYUM [Suspect]
     Indication: ARTHRALGIA
     Route: 003
     Dates: start: 20100410, end: 20100414
  5. COKENZEN [Suspect]
     Indication: HYPERTENSION
     Route: 048

REACTIONS (9)
  - Oedema peripheral [Recovered/Resolved with Sequelae]
  - Hyponatraemia [Not Recovered/Not Resolved]
  - Somnolence [Recovered/Resolved with Sequelae]
  - Paresis [Not Recovered/Not Resolved]
  - Photosensitivity reaction [Recovered/Resolved with Sequelae]
  - Oedema peripheral [None]
  - Leukocytosis [None]
  - Thrombocytopenia [None]
  - Hypokalaemia [None]
